FAERS Safety Report 5058270-5 (Version None)
Quarter: 2006Q3

REPORT INFORMATION
  Report Type: 
  Country: None (occurrence: None)
  Receive Date: 20060721
  Receipt Date: 20060712
  Transmission Date: 20061208
  Serious: Yes (Hospitalization)
  Sender: FDA-Public Use
  Company Number: 2006UW14311

PATIENT
  Sex: Female

DRUGS (2)
  1. TOPROL-XL [Suspect]
     Route: 048
  2. TOPAMAX [Suspect]
     Route: 048
     Dates: end: 20030101

REACTIONS (3)
  - COGNITIVE DISORDER [None]
  - DRUG DISPENSING ERROR [None]
  - MEDICATION ERROR [None]
